FAERS Safety Report 9490498 (Version 1)
Quarter: 2013Q3

REPORT INFORMATION
  Report Type: Spontaneous
  Country: US (occurrence: None)
  Receive Date: 20130827
  Receipt Date: 20130827
  Transmission Date: 20140515
  Serious: Yes (Hospitalization)
  Sender: FDA-Public Use
  Company Number: None

PATIENT
  Sex: Female
  Weight: 45.36 kg

DRUGS (3)
  1. PROLIA [Suspect]
     Indication: OSTEOPOROSIS
     Dosage: 1 SHOT 1 PER 6 MONTHS INJECTION
     Dates: start: 20130723
  2. LEVOXYL [Concomitant]
  3. CENTRUM VITAMIN D [Concomitant]

REACTIONS (3)
  - Urticaria [None]
  - Urticaria [None]
  - Dizziness [None]
